FAERS Safety Report 4812172-5 (Version None)
Quarter: 2005Q4

REPORT INFORMATION
  Report Type: 
  Country: None (occurrence: None)
  Receive Date: 20051028
  Receipt Date: 20040909
  Transmission Date: 20060501
  Serious: No
  Sender: FDA-Public Use
  Company Number: US-GLAXOSMITHKLINE-A0525060A

PATIENT
  Age: 46 Year
  Sex: Female

DRUGS (6)
  1. ADVAIR DISKUS 100/50 [Suspect]
     Indication: ASTHMA
     Dosage: 1PUFF TWICE PER DAY
     Route: 055
     Dates: start: 20040809
  2. ALBUTEROL [Suspect]
     Indication: ASTHMA
     Route: 065
  3. TETRACYCLINE [Concomitant]
  4. VITAMIN A [Concomitant]
  5. FLOVENT [Concomitant]
     Route: 055
  6. SEREVENT [Concomitant]
     Route: 055

REACTIONS (3)
  - CHEST DISCOMFORT [None]
  - DRUG INEFFECTIVE [None]
  - DYSPNOEA [None]
